FAERS Safety Report 24375428 (Version 1)
Quarter: 2024Q3

REPORT INFORMATION
  Report Type: Report from Study
  Country: US (occurrence: US)
  Receive Date: 20240928
  Receipt Date: 20240928
  Transmission Date: 20241017
  Serious: Yes (Other)
  Sender: ABBVIE
  Company Number: US-ABBVIE-5937393

PATIENT
  Sex: Female

DRUGS (1)
  1. RINVOQ [Suspect]
     Active Substance: UPADACITINIB
     Indication: Rheumatoid arthritis
     Route: 048

REACTIONS (7)
  - Intervertebral disc operation [Unknown]
  - Fatigue [Unknown]
  - Urticaria [Unknown]
  - Pain [Unknown]
  - Road traffic accident [Unknown]
  - Stress [Unknown]
  - Musculoskeletal disorder [Not Recovered/Not Resolved]
